FAERS Safety Report 8978414 (Version 5)
Quarter: 2013Q4

REPORT INFORMATION
  Report Type: Spontaneous
  Country: US (occurrence: US)
  Receive Date: 20121221
  Receipt Date: 20131127
  Transmission Date: 20140711
  Serious: Yes (Hospitalization, Disabling, Other)
  Sender: FDA-Public Use
  Company Number: US-009507513-1212USA007985

PATIENT
  Age: 53 Year
  Sex: Male
  Weight: 100.68 kg

DRUGS (3)
  1. PEG-INTRON [Suspect]
     Indication: HEPATITIS C
     Dosage: REDIPEN
     Dates: start: 20121208, end: 201304
  2. REBETOL [Suspect]
     Indication: HEPATITIS C
     Dosage: UNK
     Route: 048
     Dates: start: 20121208, end: 201304
  3. VICTRELIS [Suspect]
     Indication: HEPATITIS C
     Dosage: UNK
     Route: 048
     Dates: start: 20130115, end: 201304

REACTIONS (31)
  - Head injury [Unknown]
  - Coma [Unknown]
  - Fall [Unknown]
  - Hepatic cirrhosis [Unknown]
  - Neuropathy peripheral [Unknown]
  - Injury [Unknown]
  - Pain [Unknown]
  - Pain [Unknown]
  - Gait disturbance [Unknown]
  - Fatigue [Unknown]
  - Nausea [Unknown]
  - Diarrhoea [Unknown]
  - Weight decreased [Unknown]
  - Decreased appetite [Unknown]
  - Dysgeusia [Recovering/Resolving]
  - Urticaria [Unknown]
  - Dysphagia [Unknown]
  - Dyspnoea [Unknown]
  - Weight decreased [Unknown]
  - Fatigue [Unknown]
  - Decreased appetite [Recovering/Resolving]
  - Pruritus [Unknown]
  - Nausea [Unknown]
  - Headache [Unknown]
  - Dysgeusia [Unknown]
  - Drug ineffective [Unknown]
  - Nerve injury [Unknown]
  - Disturbance in attention [Unknown]
  - Pain in extremity [Unknown]
  - Dysphonia [Unknown]
  - Oropharyngeal discomfort [Unknown]
